FAERS Safety Report 16172673 (Version 1)
Quarter: 2019Q2

REPORT INFORMATION
  Report Type: Spontaneous
  Country: FR (occurrence: FR)
  Receive Date: 20190409
  Receipt Date: 20190409
  Transmission Date: 20190711
  Serious: Yes (Other)
  Sender: FDA-Public Use
  Company Number: FR-ROCHE-2298290

PATIENT
  Sex: Female

DRUGS (11)
  1. INEXIUM [Concomitant]
     Active Substance: ESOMEPRAZOLE
  2. DOLIPRANE [Concomitant]
     Active Substance: ACETAMINOPHEN
  3. CELLCEPT [Suspect]
     Active Substance: MYCOPHENOLATE MOFETIL\MYCOPHENOLATE MOFETIL HYDROCHLORIDE
     Indication: PROPHYLAXIS AGAINST TRANSPLANT REJECTION
     Route: 065
     Dates: start: 2010
  4. EZETROL [Concomitant]
     Active Substance: EZETIMIBE
  5. SOLUPRED (FRANCE) [Concomitant]
     Active Substance: PREDNISOLONE SODIUM METAZOATE
  6. SPECIAFOLDINE [Concomitant]
     Active Substance: FOLIC ACID
  7. TRIATEC (FRANCE) [Concomitant]
     Active Substance: RAMIPRIL
  8. NEORAL [Concomitant]
     Active Substance: CYCLOSPORINE
  9. MIMPARA [Concomitant]
     Active Substance: CINACALCET HYDROCHLORIDE
     Route: 065
  10. ICAZ LP [Concomitant]
     Active Substance: ISRADIPINE
     Route: 065
  11. TEMERIT [Concomitant]
     Active Substance: NEBIVOLOL

REACTIONS (2)
  - Hypercreatinaemia [Unknown]
  - Hypertension [Unknown]
